FAERS Safety Report 20785608 (Version 1)
Quarter: 2022Q2

REPORT INFORMATION
  Report Type: Spontaneous
  Country: US (occurrence: None)
  Receive Date: 20220504
  Receipt Date: 20220504
  Transmission Date: 20220721
  Serious: No
  Sender: FDA-Public Use
  Company Number: US-ROCHE-2800080

PATIENT
  Sex: Male
  Weight: 138.47 kg

DRUGS (2)
  1. OCREVUS [Suspect]
     Active Substance: OCRELIZUMAB
     Indication: Relapsing-remitting multiple sclerosis
     Route: 065
     Dates: start: 201709
  2. OCREVUS [Suspect]
     Active Substance: OCRELIZUMAB
     Indication: Relapsing multiple sclerosis
     Dosage: 600 MG EVERY 6 MONTHS?DATE OF TREATMENT:  15/FEB/2018, 20/AUG/2018, 18/FEB/2019, 19/AUG/2019, 20/FEB
     Route: 065

REACTIONS (3)
  - Vomiting [Unknown]
  - Pollakiuria [Unknown]
  - Eating disorder [Unknown]
